FAERS Safety Report 5427891-X (Version None)
Quarter: 2007Q3

REPORT INFORMATION
  Report Type: 
  Country: None (occurrence: None)
  Receive Date: 20070731
  Receipt Date: 20070620
  Transmission Date: 20080115
  Serious: No
  Sender: FDA-Public Use
  Company Number: US200705005885

PATIENT
  Age: 23 Year
  Sex: Female
  Weight: 68.5 kg

DRUGS (8)
  1. BYETTA [Suspect]
     Dosage: 5 UG, 2/D
     Dates: start: 20060821, end: 20070828
  2. MAXAIR [Concomitant]
  3. ALLEGRA [Concomitant]
  4. NASONEX [Concomitant]
  5. PROZAC [Concomitant]
  6. ZOMIG [Concomitant]
  7. SINGULAIR [Concomitant]
  8. DYNEX (GUAIFENESIN, PHENYLEPHRINE, PHENYLPROPANOLAMINE HYDROCHLORIDE) [Concomitant]

REACTIONS (2)
  - OTITIS MEDIA ACUTE [None]
  - PORPHYRIA ACUTE [None]
